FAERS Safety Report 5131695-5 (Version None)
Quarter: 2006Q4

REPORT INFORMATION
  Report Type: 
  Country: None (occurrence: None)
  Receive Date: 20061020
  Receipt Date: 20061020
  Transmission Date: 20070319
  Serious: Yes (Life-Threatening)
  Sender: FDA-Public Use
  Company Number: GB-BOEHRINGER INGELHEIM PHARMACEUTICALS, INC.-2006-DE-05533GD

PATIENT
  Age: 10 Year
  Sex: Male
  Weight: 30 kg

DRUGS (2)
  1. IPRATROPIUM BROMIDE [Suspect]
     Indication: STATUS ASTHMATICUS
     Route: 055
  2. SALBUTAMOL [Suspect]
     Indication: STATUS ASTHMATICUS
     Route: 055

REACTIONS (16)
  - BLOOD PH DECREASED [None]
  - BRADYCARDIA [None]
  - CONDITION AGGRAVATED [None]
  - DYSPNOEA [None]
  - MEAN ARTERIAL PRESSURE DECREASED [None]
  - MYDRIASIS [None]
  - OXYGEN SATURATION DECREASED [None]
  - PCO2 INCREASED [None]
  - PO2 INCREASED [None]
  - PUPILLARY REFLEX IMPAIRED [None]
  - PUPILS UNEQUAL [None]
  - SUPRAVENTRICULAR TACHYCARDIA [None]
  - TACHYPNOEA [None]
  - THERAPEUTIC PRODUCT CONTAMINATION [None]
  - THERAPY NON-RESPONDER [None]
  - WHEEZING [None]
